FAERS Safety Report 10062262 (Version 1)
Quarter: 2014Q2

REPORT INFORMATION
  Report Type: Spontaneous
  Country: US (occurrence: None)
  Receive Date: 20140404
  Receipt Date: 20140404
  Transmission Date: 20141212
  Serious: Yes (Life-Threatening, Hospitalization, Other)
  Sender: FDA-Public Use
  Company Number: None

PATIENT
  Age: 18 Year
  Sex: Female
  Weight: 64.2 kg

DRUGS (12)
  1. VALPROIC ACID [Suspect]
     Indication: CONVULSION
     Dosage: 1500MG QID G-TUBE
     Route: 048
  2. ALBUTEROL NEBS [Concomitant]
  3. AZITHROMYCIN [Concomitant]
  4. BACLOFEN [Concomitant]
  5. PULMICORT [Concomitant]
  6. VITAMIN D [Concomitant]
  7. GABAPENTIN [Concomitant]
  8. PREVACID [Concomitant]
  9. KEPPRA [Concomitant]
  10. NASONEX [Concomitant]
  11. PHENOBARBITAL [Concomitant]
  12. BACTRIM [Concomitant]

REACTIONS (9)
  - Anticonvulsant drug level increased [None]
  - Hypercapnia [None]
  - Renal failure [None]
  - Hyponatraemia [None]
  - Transaminases increased [None]
  - Thrombocytopenia [None]
  - Encephalopathy [None]
  - Pancreatitis [None]
  - Blood albumin decreased [None]
